FAERS Safety Report 6864938-8 (Version None)
Quarter: 2010Q3

REPORT INFORMATION
  Report Type: 
  Country: None (occurrence: None)
  Receive Date: 20100720
  Receipt Date: 20100713
  Transmission Date: 20110219
  Serious: Yes (Hospitalization)
  Sender: FDA-Public Use
  Company Number: TPG2010A00420

PATIENT
  Age: 73 Year
  Sex: Female

DRUGS (5)
  1. BLOPRESS PLUS (CANDESARTAN CILEXETIL, HYDROCHLOROTHIAZIDE) [Suspect]
     Indication: HYPERTENSION
     Dosage: CANDESARTAN CILEXETIL 16 MG / HYDROCHLOROTHIAZIDE 12.5 MG, PER ORAL
     Route: 048
  2. ACTOPLUS MET [Suspect]
     Indication: DIABETES MELLITUS
     Dosage: PIOGLITAZONE HYDROCHLORIDE 30 MG / METFORMIN HYDROCHLORIDE 1700 MG, PER ORAL
     Route: 048
     Dates: start: 20090826, end: 20100216
  3. FLUVASTATIN [Concomitant]
  4. ITERIUM (RILMENIDINE) [Concomitant]
  5. AMLODIPINE [Concomitant]

REACTIONS (1)
  - RENAL FAILURE ACUTE [None]
